FAERS Safety Report 5958898-1 (Version None)
Quarter: 2008Q4

REPORT INFORMATION
  Report Type: 
  Country: None (occurrence: None)
  Receive Date: 20081118
  Receipt Date: 20081104
  Transmission Date: 20090506
  Serious: Yes (Other)
  Sender: FDA-Public Use
  Company Number: 2008EK000212

PATIENT

DRUGS (11)
  1. NICARDIPINE HCL [Suspect]
     Indication: CORONARY NO-REFLOW PHENOMENON
     Dosage: 10 UG/ML; X1; ICORO
     Route: 022
  2. NICARDIPINE HCL [Suspect]
     Indication: MYOCARDIAL INFARCTION
     Dosage: 10 UG/ML; X1; ICORO
     Route: 022
  3. NICARDIPINE HCL [Suspect]
     Indication: PROPHYLAXIS
     Dosage: 10 UG/ML; X1; ICORO
     Route: 022
  4. HEPARIN [Suspect]
     Indication: CORONARY NO-REFLOW PHENOMENON
     Dosage: 1 IU/ML; X1; IV, 61 U/KG; X1; ICORO
  5. HEPARIN [Suspect]
     Indication: MYOCARDIAL INFARCTION
     Dosage: 1 IU/ML; X1; IV, 61 U/KG; X1; ICORO
  6. HEPARIN [Suspect]
     Indication: PROPHYLAXIS
     Dosage: 1 IU/ML; X1; IV, 61 U/KG; X1; ICORO
  7. ADENOSINE [Suspect]
     Indication: CORONARY NO-REFLOW PHENOMENON
     Dosage: 5 UG/ML; X1; ICORO
     Route: 022
  8. ADENOSINE [Suspect]
     Indication: MYOCARDIAL INFARCTION
     Dosage: 5 UG/ML; X1; ICORO
     Route: 022
  9. ADENOSINE [Suspect]
     Indication: PROPHYLAXIS
     Dosage: 5 UG/ML; X1; ICORO
     Route: 022
  10. NITROGLYCERIN [Suspect]
     Indication: ARTERIOSPASM CORONARY
     Dosage: 10 UG/ML; X1; ICORO
     Route: 022
  11. NITROGLYCERIN [Suspect]
     Indication: PROPHYLAXIS
     Dosage: 10 UG/ML; X1; ICORO
     Route: 022

REACTIONS (1)
  - MYOCARDIAL INFARCTION [None]
